FAERS Safety Report 9871538 (Version 2)
Quarter: 2014Q3

REPORT INFORMATION
  Report Type: Report from Study
  Country: US (occurrence: US)
  Receive Date: 20140205
  Receipt Date: 20140703
  Transmission Date: 20150326
  Serious: Yes (Other)
  Sender: FDA-Public Use
  Company Number: US-ALEXION-A201304787

PATIENT

DRUGS (1)
  1. SOLIRIS [Suspect]
     Active Substance: ECULIZUMAB
     Indication: HAEMOLYTIC URAEMIC SYNDROME
     Dosage: UNK
     Route: 042

REACTIONS (8)
  - Thrombotic microangiopathy [Unknown]
  - Chest pain [Unknown]
  - Infusion related reaction [Unknown]
  - Kidney fibrosis [Unknown]
  - Anxiety [Unknown]
  - Blood pressure increased [Unknown]
  - Pain [Unknown]
  - Headache [Unknown]
